FAERS Safety Report 11285654 (Version 2)
Quarter: 2015Q4

REPORT INFORMATION
  Report Type: Report from Study
  Country: BR (occurrence: BR)
  Receive Date: 20150721
  Receipt Date: 20151012
  Transmission Date: 20160304
  Serious: Yes (Other)
  Sender: FDA-Public Use
  Company Number: BR-ABBVIE-15K-020-1427480-00

PATIENT
  Age: 51 Year
  Sex: Female
  Weight: 57 kg

DRUGS (2)
  1. HUMIRA [Suspect]
     Active Substance: ADALIMUMAB
     Indication: CROHN^S DISEASE
     Route: 058
     Dates: start: 20140710
  2. MESALAZINE [Concomitant]
     Active Substance: MESALAMINE
     Indication: GASTROINTESTINAL DISORDER
     Route: 048
     Dates: start: 2013

REACTIONS (4)
  - Intestinal ulcer [Not Recovered/Not Resolved]
  - Spinal pain [Recovering/Resolving]
  - Pain in extremity [Recovering/Resolving]
  - Drug effect decreased [Unknown]

NARRATIVE: CASE EVENT DATE: 20150604
